FAERS Safety Report 7767844-X (Version None)
Quarter: 2011Q3

REPORT INFORMATION
  Report Type: 
  Country: None (occurrence: None)
  Receive Date: 20110922
  Receipt Date: 20110328
  Transmission Date: 20111222
  Serious: Yes (Hospitalization, Other)
  Sender: FDA-Public Use
  Company Number: US-ASTRAZENECA-2011SE17797

PATIENT
  Age: 18970 Day
  Sex: Male

DRUGS (8)
  1. ZYPREXA [Concomitant]
     Route: 048
     Dates: start: 20050907, end: 20050929
  2. VALIUM [Concomitant]
     Dosage: 5 MG TO 20 MG
     Dates: start: 20050929
  3. AMANTADINE HCL [Concomitant]
     Indication: EXTRAPYRAMIDAL DISORDER
     Route: 048
     Dates: start: 20060804
  4. HALDOL [Concomitant]
     Dosage: 0.5 MG TO 2 MG
     Dates: start: 20060608
  5. SEROQUEL [Suspect]
     Dosage: 100 MG TO 800 MG
     Route: 048
     Dates: start: 20050929
  6. REMERON [Concomitant]
     Route: 048
     Dates: start: 20050907
  7. ORAP [Concomitant]
     Dates: start: 20060804
  8. PROZAC [Concomitant]
     Route: 048
     Dates: start: 20050907

REACTIONS (5)
  - PNEUMONIA [None]
  - TACHYCARDIA [None]
  - TYPE 2 DIABETES MELLITUS [None]
  - HYPERTENSION [None]
  - EXTRAPYRAMIDAL DISORDER [None]
